FAERS Safety Report 8521158-9 (Version None)
Quarter: 2012Q3

REPORT INFORMATION
  Report Type: 
  Country: None (occurrence: None)
  Receive Date: 20120719
  Receipt Date: 20120709
  Transmission Date: 20120928
  Serious: Yes (Hospitalization)
  Sender: FDA-Public Use
  Company Number: US-ELI_LILLY_AND_COMPANY-US201207003344

PATIENT
  Sex: Female

DRUGS (12)
  1. TOPRAL                             /00586501/ [Concomitant]
     Dosage: UNK
  2. MULTI-VITAMIN [Concomitant]
     Dosage: UNK
  3. IMDUR [Concomitant]
     Dosage: UNK
  4. RAZADYNE ER [Concomitant]
     Dosage: UNK
  5. COZAAR [Concomitant]
     Dosage: UNK
  6. MIRALAX [Concomitant]
     Dosage: UNK
  7. METHOTREXATE [Concomitant]
     Dosage: UNK
  8. ASPIRIN [Concomitant]
     Dosage: UNK
  9. LIPITOR [Concomitant]
     Dosage: UNK
  10. FOLIC ACID [Concomitant]
     Dosage: UNK
  11. LEXAPRO [Concomitant]
     Dosage: UNK
  12. FORTEO [Suspect]
     Indication: OSTEOPOROSIS
     Dosage: 20 UG, QD
     Dates: start: 20110101

REACTIONS (8)
  - ASTHENIA [None]
  - GAIT DISTURBANCE [None]
  - MALAISE [None]
  - PNEUMONIA [None]
  - ARTHRITIS [None]
  - TIBIA FRACTURE [None]
  - URINARY TRACT INFECTION [None]
  - FOOT DEFORMITY [None]
